FAERS Safety Report 5160277-4 (Version None)
Quarter: 2006Q4

REPORT INFORMATION
  Report Type: 
  Country: None (occurrence: None)
  Receive Date: 20061129
  Receipt Date: 20060920
  Transmission Date: 20070319
  Serious: Yes (Death, Hospitalization)
  Sender: FDA-Public Use
  Company Number: FR-GLAXOSMITHKLINE-B0439410A

PATIENT
  Age: 82 Year
  Sex: Female
  Weight: 65 kg

DRUGS (8)
  1. ARIXTRA [Suspect]
     Indication: DEEP VEIN THROMBOSIS
     Dosage: 7.5MG PER DAY
     Route: 058
     Dates: start: 20060808, end: 20060825
  2. TED STOCKINGS [Suspect]
     Indication: DEEP VEIN THROMBOSIS
     Dates: start: 20060807
  3. LOVENOX [Concomitant]
     Indication: DEEP VEIN THROMBOSIS
     Dosage: .9ML SINGLE DOSE
     Route: 058
     Dates: start: 20060806, end: 20060806
  4. INNOHEP [Concomitant]
     Indication: DEEP VEIN THROMBOSIS
     Dosage: .7ML PER DAY
     Route: 058
     Dates: start: 20060826, end: 20060826
  5. CORDARONE [Concomitant]
     Dosage: 1UNIT PER DAY
     Route: 048
  6. TEGRETOL [Concomitant]
     Indication: DRUG USE FOR UNKNOWN INDICATION
     Dosage: 1UNIT PER DAY
     Route: 048
  7. REMINYL [Concomitant]
     Dosage: 2UNIT PER DAY
     Route: 048
  8. MEMANTINE HCL [Concomitant]
     Dosage: 2UNIT PER DAY
     Route: 048

REACTIONS (7)
  - CEREBRAL HAEMORRHAGE [None]
  - COMA [None]
  - DEEP VEIN THROMBOSIS [None]
  - DRUG INEFFECTIVE [None]
  - HEMIPLEGIA [None]
  - PURPURA [None]
  - SKIN DISORDER [None]
